FAERS Safety Report 12120502 (Version 1)
Quarter: 2016Q1

REPORT INFORMATION
  Report Type: Spontaneous
  Country: US (occurrence: US)
  Receive Date: 20160226
  Receipt Date: 20160226
  Transmission Date: 20160526
  Serious: No
  Sender: FDA-Public Use
  Company Number: US-SHIRE-US201602326

PATIENT
  Age: 51 Year
  Sex: Female
  Weight: 63.49 kg

DRUGS (6)
  1. VYVANSE [Suspect]
     Active Substance: LISDEXAMFETAMINE DIMESYLATE
     Dosage: 40 UNK, UNK
     Dates: start: 2015
  2. CELEXA [Concomitant]
     Active Substance: CITALOPRAM HYDROBROMIDE
     Indication: PRODUCT USED FOR UNKNOWN INDICATION
     Dosage: 40 MG, 1X/DAY:QD
     Route: 048
     Dates: start: 201411
  3. ALPRAZOLAM. [Concomitant]
     Active Substance: ALPRAZOLAM
     Indication: SLEEP DISORDER
     Dosage: 1 MG, 1X/DAY:QD
     Route: 048
     Dates: start: 201411
  4. ALPRAZOLAM. [Concomitant]
     Active Substance: ALPRAZOLAM
     Dosage: 1 MG, AS REQ^D
     Route: 048
     Dates: start: 201411
  5. VYVANSE [Suspect]
     Active Substance: LISDEXAMFETAMINE DIMESYLATE
     Indication: POST-TRAUMATIC STRESS DISORDER
     Dosage: 30 MG, 1X/DAY:QD
     Route: 048
     Dates: start: 201411, end: 2015
  6. VOLTAREN [Concomitant]
     Active Substance: DICLOFENAC SODIUM
     Indication: OSTEOARTHRITIS
     Dosage: UNK, UNKNOWN
     Route: 065

REACTIONS (8)
  - Product use issue [Not Recovered/Not Resolved]
  - Incorrect dose administered [Recovered/Resolved]
  - Sleep disorder [Recovered/Resolved]
  - Drug dose omission [Recovered/Resolved]
  - Disturbance in social behaviour [Recovered/Resolved]
  - Drug effect decreased [Recovered/Resolved]
  - Nightmare [Recovered/Resolved]
  - Condition aggravated [Recovered/Resolved]

NARRATIVE: CASE EVENT DATE: 201411
